FAERS Safety Report 24572299 (Version 2)
Quarter: 2025Q3

REPORT INFORMATION
  Report Type: Spontaneous
  Country: JP (occurrence: JP)
  Receive Date: 20241101
  Receipt Date: 20250810
  Transmission Date: 20251020
  Serious: Yes (Death, Other)
  Sender: ALEXION PHARMACEUTICALS
  Company Number: JP-ASTRAZENECA-240045970_064320_P_1

PATIENT
  Age: 86 Year
  Sex: Male
  Weight: 58 kg

DRUGS (15)
  1. ANDEXXA [Suspect]
     Active Substance: ANDEXANET ALFA
     Indication: Subcutaneous haematoma
  2. EDOXABAN TOSYLATE [Suspect]
     Active Substance: EDOXABAN TOSYLATE
     Dosage: 30 MILLIGRAM, QD
     Dates: end: 20231029
  3. EDOXABAN TOSYLATE [Suspect]
     Active Substance: EDOXABAN TOSYLATE
     Dates: start: 20231101, end: 20231105
  4. OMEPRAZOLE [Concomitant]
     Active Substance: OMEPRAZOLE
     Dates: start: 20231029, end: 20231030
  5. LANSOPRAZOLE [Concomitant]
     Active Substance: LANSOPRAZOLE
     Dosage: 30 MILLIGRAM, BID
     Dates: start: 20231031, end: 20231101
  6. PENTAZOCINE [Concomitant]
     Active Substance: PENTAZOCINE
     Dosage: 15 MILLIGRAM, QD
     Dates: start: 20231029, end: 20231030
  7. CEFTRIAXONE SODIUM [Concomitant]
     Active Substance: CEFTRIAXONE SODIUM
     Dosage: 2 GRAM, QD
     Dates: start: 20231031, end: 20231104
  8. ACETAMINOPHEN [Concomitant]
     Active Substance: ACETAMINOPHEN
     Dosage: 1000 MILLIGRAM, TID
     Dates: start: 20231029, end: 20231102
  9. DIGOXIN [Concomitant]
     Active Substance: DIGOXIN
     Dosage: 0.063 MILLIGRAM, QD
     Dates: start: 20231101, end: 20231105
  10. ACETAMINOPHEN [Concomitant]
     Active Substance: ACETAMINOPHEN
     Dosage: 500 MILLIGRAM, QID
     Dates: start: 20231103, end: 20231105
  11. AZOSEMIDE [Concomitant]
     Active Substance: AZOSEMIDE
     Dosage: 60 MILLIGRAM, QD
     Dates: start: 20231101, end: 20231105
  12. EPLERENONE [Concomitant]
     Active Substance: EPLERENONE
     Dosage: 25 MILLIGRAM, QD
     Dates: start: 20231101, end: 20231105
  13. BISOPROLOL [Concomitant]
     Active Substance: BISOPROLOL
     Dosage: 5 MILLIGRAM, BID
     Dates: start: 20231031, end: 20231105
  14. VERAPAMIL [Concomitant]
     Active Substance: VERAPAMIL HYDROCHLORIDE
     Dosage: 40 MILLIGRAM, BID
     Dates: start: 20231031, end: 20231105
  15. RABEPRAZOLE SODIUM [Concomitant]
     Active Substance: RABEPRAZOLE SODIUM
     Dosage: 10 MILLIGRAM, QD
     Dates: start: 20231102, end: 20231105

REACTIONS (5)
  - Cerebral infarction [Fatal]
  - Sepsis [Fatal]
  - Pneumonia aspiration [Fatal]
  - Renal impairment [Fatal]
  - Haematochezia [Unknown]

NARRATIVE: CASE EVENT DATE: 20231105
